FAERS Safety Report 9325925 (Version 1)
Quarter: 2013Q2

REPORT INFORMATION
  Report Type: Report from Study
  Country: CA (occurrence: CA)
  Receive Date: 20130604
  Receipt Date: 20130604
  Transmission Date: 20140414
  Serious: Yes (Hospitalization, Other)
  Sender: FDA-Public Use
  Company Number: CA-JNJFOC-20130503657

PATIENT
  Age: 45 Year
  Sex: Male
  Weight: 109 kg

DRUGS (11)
  1. REMICADE [Suspect]
     Indication: SARCOIDOSIS
     Dosage: WEEK 2 INFUSION
     Route: 042
     Dates: start: 20130509
  2. REMICADE [Suspect]
     Indication: SARCOIDOSIS
     Dosage: LOADING DOSE
     Route: 042
     Dates: start: 20130425
  3. PREDNISONE [Concomitant]
     Route: 065
  4. METHOTREXATE [Concomitant]
     Route: 065
  5. MONTELUKAST [Concomitant]
     Route: 065
  6. ATORVASTATIN [Concomitant]
     Route: 065
  7. ATROVENT [Concomitant]
     Route: 065
  8. TORASEMIDE [Concomitant]
     Route: 065
  9. COVERSYL [Concomitant]
     Route: 065
  10. VENTOLIN [Concomitant]
     Route: 065
  11. ZENHALE (ASTHMA) [Concomitant]
     Route: 065

REACTIONS (4)
  - Dizziness [Recovering/Resolving]
  - Malaise [Recovering/Resolving]
  - Therapeutic procedure [Unknown]
  - Off label use [Unknown]
